FAERS Safety Report 7971896-1 (Version None)
Quarter: 2011Q4

REPORT INFORMATION
  Report Type: 
  Country: None (occurrence: None)
  Receive Date: 20111212
  Receipt Date: 20111130
  Transmission Date: 20120403
  Serious: Yes (Other)
  Sender: FDA-Public Use
  Company Number: PHHY2011BR105818

PATIENT

DRUGS (1)
  1. GLEEVEC [Suspect]
     Dosage: 400 MG,

REACTIONS (1)
  - GOITRE [None]
